FAERS Safety Report 12504308 (Version 1)
Quarter: 2016Q2

REPORT INFORMATION
  Report Type: Spontaneous
  Country: US (occurrence: None)
  Receive Date: 20160627
  Receipt Date: 20160627
  Transmission Date: 20160815
  Serious: Yes (Death)
  Sender: FDA-Public Use
  Company Number: None

PATIENT
  Age: 81 Year
  Sex: Male
  Weight: 72.12 kg

DRUGS (2)
  1. BACLOFEN, 20 MG [Suspect]
     Active Substance: BACLOFEN
     Indication: FALL
     Route: 048
     Dates: start: 20160603, end: 20160603
  2. BACLOFEN, 20 MG [Suspect]
     Active Substance: BACLOFEN
     Indication: BACK PAIN
     Route: 048
     Dates: start: 20160603, end: 20160603

REACTIONS (5)
  - Pneumonia aspiration [None]
  - Sepsis [None]
  - Aspiration [None]
  - Procedural complication [None]
  - Depressed level of consciousness [None]

NARRATIVE: CASE EVENT DATE: 20160604
